FAERS Safety Report 23220905 (Version 1)
Quarter: 2023Q4

REPORT INFORMATION
  Report Type: Spontaneous
  Country: US (occurrence: US)
  Receive Date: 20231123
  Receipt Date: 20231123
  Transmission Date: 20240109
  Serious: No
  Sender: FDA-Public Use
  Company Number: US-UROGEN PHARMA LTD.-2023-UGN-000078

PATIENT

DRUGS (2)
  1. JELMYTO [Suspect]
     Active Substance: MITOMYCIN
     Indication: Transitional cell cancer of the renal pelvis and ureter
     Dosage: 7 MILLILITER, ONCE A WEEK (INSTILLATION)
     Dates: start: 20230919, end: 20230919
  2. JELMYTO [Suspect]
     Active Substance: MITOMYCIN
     Dosage: 7 MILLILITER, ONCE A WEEK (INSTILLATION)
     Dates: start: 20230926, end: 20230926

REACTIONS (1)
  - Haematuria [Not Recovered/Not Resolved]

NARRATIVE: CASE EVENT DATE: 20231003
